FAERS Safety Report 7328957-X (Version None)
Quarter: 2011Q1

REPORT INFORMATION
  Report Type: 
  Country: None (occurrence: None)
  Receive Date: 20110303
  Receipt Date: 20110217
  Transmission Date: 20110831
  Serious: Yes (Other)
  Sender: FDA-Public Use
  Company Number: FR-BAXTER-2011BH004070

PATIENT
  Age: 39 Year
  Sex: Male

DRUGS (2)
  1. GAMMAGARD LIQUID [Suspect]
     Indication: PRODUCT USED FOR UNKNOWN INDICATION
     Route: 042
     Dates: start: 20071122, end: 20071122
  2. IMMUNOGLOBULINS [Concomitant]
     Indication: IMMUNODEFICIENCY COMMON VARIABLE

REACTIONS (3)
  - PYREXIA [None]
  - CHILLS [None]
  - BLOOD PRESSURE INCREASED [None]
